FAERS Safety Report 7559825-6 (Version None)
Quarter: 2011Q2

REPORT INFORMATION
  Report Type: 
  Country: None (occurrence: None)
  Receive Date: 20110609
  Receipt Date: 20110606
  Transmission Date: 20111010
  Serious: Yes (Hospitalization)
  Sender: FDA-Public Use
  Company Number: 2011028821

PATIENT
  Age: 52 Year
  Sex: Female
  Weight: 135 kg

DRUGS (8)
  1. SPIRIVA [Concomitant]
  2. ADAVIR (SERETIDE /01420901/) [Concomitant]
  3. ZEMAIRA [Suspect]
     Indication: EMPHYSEMA
     Dosage: SEE IMAGE
     Route: 042
     Dates: start: 20051201, end: 20051201
  4. ZEMAIRA [Suspect]
     Indication: ALPHA-1 ANTI-TRYPSIN DEFICIENCY
     Dosage: SEE IMAGE
     Route: 042
     Dates: start: 20051201, end: 20051201
  5. IBUPROFEN [Concomitant]
  6. ALBUTEROL [Concomitant]
  7. FLONASE [Concomitant]
  8. ACCOLATE [Concomitant]

REACTIONS (1)
  - NEPHROLITHIASIS [None]
